FAERS Safety Report 6170319-5 (Version None)
Quarter: 2009Q2

REPORT INFORMATION
  Report Type: 
  Country: None (occurrence: None)
  Receive Date: 20090428
  Receipt Date: 20090417
  Transmission Date: 20091009
  Serious: Yes (Other)
  Sender: FDA-Public Use
  Company Number: HK-PFIZER INC-2009200430

PATIENT

DRUGS (8)
  1. BLINDED *PLACEBO [Suspect]
     Indication: CARDIAC FAILURE
     Dosage: UNK
     Route: 048
     Dates: start: 20070323
  2. BLINDED EPLERENONE [Suspect]
     Indication: CARDIAC FAILURE
     Dosage: UNK
     Route: 048
     Dates: start: 20070323
  3. RAMIPRIL [Concomitant]
     Dosage: UNK
     Route: 048
     Dates: start: 20070131
  4. BISOPROLOL [Concomitant]
     Dosage: UNK
     Route: 048
     Dates: start: 20070317
  5. POTASSIUM CHLORIDE [Concomitant]
     Dosage: UNK
     Dates: start: 20070203
  6. FRUSEMIDE [Concomitant]
     Dosage: UNK
     Route: 048
     Dates: start: 20070203
  7. DIGOXIN [Concomitant]
     Dosage: UNK
     Route: 048
     Dates: start: 20070316
  8. WARFARIN [Concomitant]
     Dosage: UNK
     Route: 048
     Dates: start: 20070316

REACTIONS (1)
  - GOUT [None]
